FAERS Safety Report 19389442 (Version 2)
Quarter: 2021Q2

REPORT INFORMATION
  Report Type: Spontaneous
  Country: JP (occurrence: JP)
  Receive Date: 20210608
  Receipt Date: 20210616
  Transmission Date: 20210717
  Serious: Yes (Life-Threatening, Hospitalization, Other)
  Sender: FDA-Public Use
  Company Number: JP-PFIZER INC-2021648541

PATIENT
  Age: 70 Year
  Sex: Female
  Weight: 44.4 kg

DRUGS (3)
  1. BEVACIZUMAB. [Suspect]
     Active Substance: BEVACIZUMAB
     Indication: HEPATOCELLULAR CARCINOMA
     Dosage: 15 MG/KG, CYCLIC (15 MG PER KILOGRAM OF BODY WEIGHT INTRAVENOUSLY AS FIRST?LINE CHEMOTHERAPY)
     Route: 042
     Dates: start: 202012
  2. EPIRUBICIN HCL [Suspect]
     Active Substance: EPIRUBICIN HYDROCHLORIDE
     Indication: HEPATOCELLULAR CARCINOMA
     Dosage: UNK, CYCLIC
     Dates: start: 202007, end: 202010
  3. ATEZOLIZUMAB. [Suspect]
     Active Substance: ATEZOLIZUMAB
     Indication: HEPATOCELLULAR CARCINOMA
     Dosage: 1200 MG, CYCLIC
     Dates: start: 202012

REACTIONS (2)
  - Myocarditis [Recovering/Resolving]
  - Cardiac failure acute [Recovering/Resolving]
